FAERS Safety Report 23064330 (Version 1)
Quarter: 2023Q4

REPORT INFORMATION
  Report Type: Spontaneous
  Country: CN (occurrence: CN)
  Receive Date: 20231013
  Receipt Date: 20231013
  Transmission Date: 20240109
  Serious: Yes (Hospitalization, Other)
  Sender: FDA-Public Use
  Company Number: CN-SA-SAC20231011001153

PATIENT
  Age: 59 Year
  Sex: Male
  Weight: 60 kg

DRUGS (2)
  1. CLOPIDOGREL BISULFATE [Suspect]
     Active Substance: CLOPIDOGREL BISULFATE
     Indication: Cerebral infarction
     Dosage: 75 MG QD
     Route: 048
     Dates: start: 20230323, end: 20230403
  2. ASPIRIN [Suspect]
     Active Substance: ASPIRIN
     Indication: Cerebral infarction
     Dosage: 100MG QD
     Route: 048
     Dates: start: 20230323, end: 20230403

REACTIONS (4)
  - Syncope [Recovering/Resolving]
  - Upper gastrointestinal haemorrhage [Recovering/Resolving]
  - Melaena [Recovering/Resolving]
  - Dizziness [Recovering/Resolving]

NARRATIVE: CASE EVENT DATE: 20230401
